FAERS Safety Report 26219053 (Version 1)
Quarter: 2025Q4

REPORT INFORMATION
  Report Type: Report from Study
  Country: SY (occurrence: SY)
  Receive Date: 20251231
  Receipt Date: 20251231
  Transmission Date: 20260117
  Serious: Yes (Other)
  Sender: GILEAD
  Company Number: SY-GILEAD-2025-0742758

PATIENT
  Sex: Female

DRUGS (1)
  1. SACITUZUMAB GOVITECAN-HZIY [Suspect]
     Active Substance: SACITUZUMAB GOVITECAN-HZIY
     Indication: Triple negative breast cancer
     Dosage: 3 CYCLES
     Route: 065

REACTIONS (2)
  - Triple negative breast cancer [Recovering/Resolving]
  - Breast cancer recurrent [Recovering/Resolving]
